FAERS Safety Report 4667177-4 (Version None)
Quarter: 2005Q2

REPORT INFORMATION
  Report Type: 
  Country: None (occurrence: None)
  Receive Date: 20050520
  Receipt Date: 20050510
  Transmission Date: 20051028
  Serious: Yes (Hospitalization, Other)
  Sender: FDA-Public Use
  Company Number: GB-JNJFOC-20050406685

PATIENT
  Sex: Female
  Weight: 80 kg

DRUGS (15)
  1. REMICADE [Suspect]
     Indication: RHEUMATOID ARTHRITIS
     Route: 042
  2. LEFLUNOMIDE [Concomitant]
  3. SULFASALAZINE [Concomitant]
  4. CELIPROLOL [Concomitant]
  5. PREDNISOLONE [Concomitant]
  6. FERROUS SULFATE TAB [Concomitant]
  7. IBUPROFEN [Concomitant]
  8. COPROXAMOL [Concomitant]
  9. COPROXAMOL [Concomitant]
  10. CALCITRIOL [Concomitant]
  11. CALCITRIOL [Concomitant]
  12. CALCITRIOL [Concomitant]
  13. HYDROXYZINE [Concomitant]
  14. CO-AMILOZIDE [Concomitant]
     Route: 065
  15. CO-AMILOZIDE [Concomitant]
     Route: 065

REACTIONS (4)
  - CORONARY ARTERY OCCLUSION [None]
  - INFECTION [None]
  - JOINT DISLOCATION [None]
  - MYOCARDIAL INFARCTION [None]
